FAERS Safety Report 17828228 (Version 1)
Quarter: 2020Q2

REPORT INFORMATION
  Report Type: Spontaneous
  Country: US (occurrence: US)
  Receive Date: 20200527
  Receipt Date: 20200527
  Transmission Date: 20200714
  Serious: Yes (Life-Threatening, Hospitalization, Other)
  Sender: FDA-Public Use
  Company Number: US-TORRENT-00010241

PATIENT
  Age: 51 Year
  Sex: Female

DRUGS (9)
  1. DIPHENHYDRAMINE. [Suspect]
     Active Substance: DIPHENHYDRAMINE
     Indication: BIPOLAR DISORDER
     Dosage: TWO ROUNDS ON DAY 2 AND DAY 3
     Route: 030
  2. ZYPREXA [Suspect]
     Active Substance: OLANZAPINE
     Indication: BIPOLAR DISORDER
     Dosage: AS NECESSARY AT DAY 4
  3. CHLORPROMAZINE. [Interacting]
     Active Substance: CHLORPROMAZINE
     Indication: AGITATION
     Dosage: ON DAY 4 THE DOSE WAS AGAIN CHANGED TO 100 MG PO/IM
     Route: 030
  4. VALPROIC ACID. [Interacting]
     Active Substance: VALPROIC ACID
     Indication: MOOD SWINGS
     Dosage: EVERY NIGHT AT BEDTIME (QHS)
     Route: 048
  5. LORAZEPAM. [Suspect]
     Active Substance: LORAZEPAM
     Indication: PRODUCT USED FOR UNKNOWN INDICATION
     Dosage: ON DAY 4
     Route: 030
  6. OSELTAMIVIR [Concomitant]
     Active Substance: OSELTAMIVIR
     Indication: INFLUENZA
     Dosage: UNKNOWN
  7. HALOPERIDOL. [Suspect]
     Active Substance: HALOPERIDOL
     Indication: BIPOLAR DISORDER
     Dosage: TWO ROUNDS ON DAY 2 AND DAY 3
  8. CLONAZEPAM. [Suspect]
     Active Substance: CLONAZEPAM
     Indication: BIPOLAR DISORDER
     Dosage: AT DAY 1
     Route: 048
  9. OLANZAPINE. [Suspect]
     Active Substance: OLANZAPINE
     Indication: BIPOLAR DISORDER
     Dosage: ON DAY 1 AS AN WHEN NECESSARY (PRN)

REACTIONS (10)
  - Hypercapnia [Recovered/Resolved]
  - Somnolence [Unknown]
  - Respiratory failure [Recovered/Resolved]
  - Deep vein thrombosis [Recovered/Resolved]
  - Chronic obstructive pulmonary disease [Recovered/Resolved]
  - Dysarthria [Unknown]
  - Pneumonia [Unknown]
  - Respiratory distress [Recovered/Resolved]
  - Pulmonary embolism [Recovered/Resolved]
  - Drug interaction [Unknown]
